FAERS Safety Report 4626303-3 (Version None)
Quarter: 2005Q2

REPORT INFORMATION
  Report Type: 
  Country: None (occurrence: None)
  Receive Date: 20050331
  Receipt Date: 20040213
  Transmission Date: 20051028
  Serious: Yes (Other)
  Sender: FDA-Public Use
  Company Number: 200410758BCC

PATIENT
  Age: 30 Year
  Sex: Female
  Weight: 52.1637 kg

DRUGS (3)
  1. ALEVE (CAPLET) [Suspect]
     Indication: ARTHRITIS
     Dosage: 440 MG, QD, ORAL
     Route: 048
     Dates: start: 20040206
  2. BIRTH CONTROL [Concomitant]
  3. IBUPROFEN [Concomitant]

REACTIONS (12)
  - ABDOMINAL PAIN UPPER [None]
  - ANAPHYLACTIC REACTION [None]
  - FLUSHING [None]
  - HYPERSENSITIVITY [None]
  - JOINT SWELLING [None]
  - LOSS OF CONSCIOUSNESS [None]
  - OROPHARYNGEAL SWELLING [None]
  - PRURITUS [None]
  - RESPIRATORY ARREST [None]
  - SKIN BURNING SENSATION [None]
  - URTICARIA GENERALISED [None]
  - VOMITING [None]
